FAERS Safety Report 23442544 (Version 1)
Quarter: 2024Q1

REPORT INFORMATION
  Report Type: Spontaneous
  Country: US (occurrence: None)
  Receive Date: 20240124
  Receipt Date: 20240124
  Transmission Date: 20240410
  Serious: No
  Sender: FDA-Public Use
  Company Number: None

PATIENT
  Age: 67 Year
  Sex: Male

DRUGS (2)
  1. HUMIRA [Suspect]
     Active Substance: ADALIMUMAB
     Indication: Ankylosing spondylitis
     Dosage: FREQUENCY : AS DIRECTED;?
     Route: 058
     Dates: start: 202204
  2. HUMIRA [Suspect]
     Active Substance: ADALIMUMAB
     Indication: Spinal disorder

REACTIONS (4)
  - Hypoaesthesia [None]
  - Hypoaesthesia [None]
  - Hypoaesthesia [None]
  - Cerebrovascular accident [None]
